FAERS Safety Report 8017569-0 (Version None)
Quarter: 2011Q4

REPORT INFORMATION
  Report Type: 
  Country: None (occurrence: None)
  Receive Date: 20111229
  Receipt Date: 20111229
  Transmission Date: 20120403
  Serious: Yes (Hospitalization)
  Sender: FDA-Public Use
  Company Number: None

PATIENT
  Age: 45 Year
  Sex: Female
  Weight: 65.3 kg

DRUGS (8)
  1. COUMADIN [Suspect]
     Indication: AORTIC VALVE REPLACEMENT
     Dosage: 6MG SUN PO CHRONIC
     Route: 048
  2. COUMADIN [Suspect]
     Indication: AORTIC VALVE REPLACEMENT
     Dosage: 10 MG MTWTHFS PO CHRONIC
     Route: 048
  3. VITAMIN B-12 [Concomitant]
  4. ACIPHEX [Concomitant]
  5. CALCIUM + VIT D [Concomitant]
  6. ZOFRAN [Concomitant]
  7. MAGNESIUM HYDROXIDE TAB [Concomitant]
  8. TYLENOL PM [Concomitant]

REACTIONS (8)
  - NAUSEA [None]
  - HAEMATOCHEZIA [None]
  - INTERNATIONAL NORMALISED RATIO INCREASED [None]
  - HAEMATURIA [None]
  - GASTROINTESTINAL HAEMORRHAGE [None]
  - ANASTOMOTIC ULCER [None]
  - SUTURE RELATED COMPLICATION [None]
  - VOMITING [None]
